FAERS Safety Report 19877412 (Version 5)
Quarter: 2022Q1

REPORT INFORMATION
  Report Type: Spontaneous
  Country: US (occurrence: US)
  Receive Date: 20210923
  Receipt Date: 20220211
  Transmission Date: 20220424
  Serious: Yes (Other)
  Sender: FDA-Public Use
  Company Number: US-PFIZER INC-2021817428

PATIENT
  Age: 57 Year
  Sex: Female

DRUGS (3)
  1. XELJANZ XR [Suspect]
     Active Substance: TOFACITINIB CITRATE
     Indication: Rheumatoid arthritis
     Dosage: 11 MG, 1X/DAY
     Route: 048
     Dates: start: 20210622
  2. DIMETHYL FUMARATE [Suspect]
     Active Substance: DIMETHYL FUMARATE
     Dosage: UNK
  3. HYDROCODONE [Suspect]
     Active Substance: HYDROCODONE
     Dosage: UNK

REACTIONS (6)
  - Multiple sclerosis [Unknown]
  - Therapeutic product effect incomplete [Unknown]
  - Nausea [Unknown]
  - Gastrointestinal tract irritation [Unknown]
  - Weight decreased [Unknown]
  - Peripheral swelling [Unknown]

NARRATIVE: CASE EVENT DATE: 20210101
